FAERS Safety Report 10969410 (Version 1)
Quarter: 2015Q1

REPORT INFORMATION
  Report Type: Spontaneous
  Country: JP (occurrence: None)
  Receive Date: 20150327
  Receipt Date: 20150327
  Transmission Date: 20150721
  Serious: Yes (Other)
  Sender: FDA-Public Use
  Company Number: JP-20150067

PATIENT
  Age: 62 Year
  Sex: Male

DRUGS (3)
  1. LIPIODOL [Suspect]
     Active Substance: ETHIODIZED OIL
     Indication: THERAPEUTIC EMBOLISATION
     Route: 013
     Dates: start: 200801, end: 200801
  2. CISPLATIN. [Concomitant]
     Active Substance: CISPLATIN
  3. DEGRADABLE STARCH MICROSPHERES (STARCH) [Concomitant]

REACTIONS (5)
  - Nausea [None]
  - Decreased appetite [None]
  - Diarrhoea [None]
  - Product use issue [None]
  - Bone marrow failure [None]

NARRATIVE: CASE EVENT DATE: 2008
